FAERS Safety Report 8545363-0 (Version None)
Quarter: 2012Q3

REPORT INFORMATION
  Report Type: 
  Country: None (occurrence: None)
  Receive Date: 20120727
  Receipt Date: 20120724
  Transmission Date: 20120928
  Serious: Yes (Other)
  Sender: FDA-Public Use
  Company Number: US-PFIZER INC-2012164948

PATIENT
  Sex: Male
  Weight: 161 kg

DRUGS (8)
  1. NEURONTIN [Suspect]
     Indication: PAIN
     Dosage: 600 MG, 1X/DAY
     Route: 048
     Dates: start: 20110801, end: 20120601
  2. LISINOPRIL AND HYDROCHLOROTHIAZIDE [Concomitant]
     Indication: HYPERTENSION
     Dosage: UNK
  3. XANAX [Concomitant]
     Dosage: UNK
  4. NEURONTIN [Suspect]
     Dosage: 800 MG, 1X/DAY
     Route: 048
     Dates: start: 20120601
  5. OXYBUTYNIN [Concomitant]
     Indication: BLADDER DISORDER
     Dosage: UNK
  6. DOCUSATE SODIUM/SENNOSIDE A+B [Concomitant]
     Indication: FAECES HARD
     Dosage: UNK
  7. BUSPAR [Concomitant]
     Dosage: UNK
  8. CYCLOBENZAPRINE [Concomitant]
     Indication: MUSCLE RELAXANT THERAPY
     Dosage: UNK

REACTIONS (1)
  - MULTIPLE SCLEROSIS [None]
